FAERS Safety Report 8886255 (Version 3)
Quarter: 2015Q1

REPORT INFORMATION
  Report Type: Spontaneous
  Country: US (occurrence: US)
  Receive Date: 20121105
  Receipt Date: 20150309
  Transmission Date: 20150721
  Serious: Yes (Hospitalization, Disabling, Other)
  Sender: FDA-Public Use
  Company Number: US-009507513-1210USA014641

PATIENT
  Sex: Female

DRUGS (4)
  1. FOSAMAX [Suspect]
     Active Substance: ALENDRONATE SODIUM
     Indication: OSTEOPOROSIS PROPHYLAXIS
     Route: 048
  2. FOSAMAX [Suspect]
     Active Substance: ALENDRONATE SODIUM
     Indication: OSTEOPOROSIS
  3. FOSAMAX [Suspect]
     Active Substance: ALENDRONATE SODIUM
     Indication: OSTEOPENIA
     Dosage: 70 MG, UNK
     Route: 048
     Dates: start: 200311, end: 200803
  4. ALENDRONATE SODIUM. [Suspect]
     Active Substance: ALENDRONATE SODIUM
     Indication: OSTEOPENIA
     Dosage: 70 MG, UNK
     Route: 048
     Dates: start: 200803, end: 201006

REACTIONS (16)
  - Femur fracture [Unknown]
  - Osteoporosis [Unknown]
  - Paranasal sinus hypersecretion [Unknown]
  - Arthritis [Unknown]
  - Pain in extremity [Unknown]
  - Intramedullary rod insertion [Unknown]
  - Low turnover osteopathy [Unknown]
  - Cholecystectomy [Unknown]
  - Blood cholesterol increased [Unknown]
  - Cardiac disorder [Unknown]
  - Aortic calcification [Unknown]
  - Femur fracture [Unknown]
  - Adverse event [Unknown]
  - Visual impairment [Unknown]
  - Spinal osteoarthritis [Unknown]
  - Stress fracture [Unknown]

NARRATIVE: CASE EVENT DATE: 20031112
